FAERS Safety Report 15841817 (Version 2)
Quarter: 2019Q2

REPORT INFORMATION
  Report Type: Spontaneous
  Country: NL (occurrence: NL)
  Receive Date: 20190118
  Receipt Date: 20190613
  Transmission Date: 20190711
  Serious: Yes (Other)
  Sender: FDA-Public Use
  Company Number: NL-TEVA-2019-NL-1001253

PATIENT
  Sex: Male

DRUGS (1)
  1. KINECTEEN 36 MG [Suspect]
     Active Substance: METHYLPHENIDATE
     Indication: PRODUCT USED FOR UNKNOWN INDICATION
     Route: 048

REACTIONS (4)
  - Intracranial pressure increased [Not Recovered/Not Resolved]
  - Product solubility abnormal [Not Recovered/Not Resolved]
  - Product residue present [Not Recovered/Not Resolved]
  - Disturbance in attention [Not Recovered/Not Resolved]
